FAERS Safety Report 17645376 (Version 1)
Quarter: 2020Q2

REPORT INFORMATION
  Report Type: Spontaneous
  Country: US (occurrence: US)
  Receive Date: 20200408
  Receipt Date: 20200408
  Transmission Date: 20200713
  Serious: Yes (Hospitalization)
  Sender: FDA-Public Use
  Company Number: US-MYLANLABS-2020M1035035

PATIENT
  Age: 69 Year
  Sex: Female

DRUGS (1)
  1. BACLOFEN. [Suspect]
     Active Substance: BACLOFEN
     Indication: PARALYSIS
     Route: 037

REACTIONS (11)
  - Condition aggravated [Unknown]
  - Tachycardia [Recovering/Resolving]
  - Hypertension [Recovering/Resolving]
  - Muscle rigidity [Unknown]
  - Hyperhidrosis [Unknown]
  - Device malfunction [Recovered/Resolved]
  - Pyrexia [Unknown]
  - Tremor [Unknown]
  - Speech disorder [Unknown]
  - Withdrawal syndrome [Recovering/Resolving]
  - Mental status changes [Unknown]
